FAERS Safety Report 10149537 (Version 1)
Quarter: 2014Q2

REPORT INFORMATION
  Report Type: Spontaneous
  Country: PR (occurrence: None)
  Receive Date: 20140501
  Receipt Date: 20140501
  Transmission Date: 20141212
  Serious: No
  Sender: FDA-Public Use
  Company Number: None

PATIENT
  Sex: 0

DRUGS (1)
  1. DICLOFENAC POTASSIUM [Suspect]
     Dosage: 2 TABLETS

REACTIONS (3)
  - Hypersensitivity [None]
  - Product label issue [None]
  - Product counterfeit [None]
